FAERS Safety Report 8770714 (Version 3)
Quarter: 2012Q4

REPORT INFORMATION
  Report Type: 
  Country: TW (occurrence: TW)
  Receive Date: 20120907
  Receipt Date: 20121011
  Transmission Date: 20130627
  Serious: Yes (Other)
  Sender: FDA-Public Use
  Company Number: TW-ROCHE-1117234

PATIENT
  Age: 40 Year
  Sex: Female

DRUGS (1)
  1. PEGASYS [Suspect]
     Indication: HEPATITIS B
     Route: 065
     Dates: start: 20110526, end: 20120628

REACTIONS (8)
  - Nerve degeneration [Recovering/Resolving]
  - Pituitary tumour [Unknown]
  - Depression [Unknown]
  - Pruritus [Unknown]
  - Dyskinesia [Not Recovered/Not Resolved]
  - Hypoaesthesia [Not Recovered/Not Resolved]
  - Lung infection [Unknown]
  - Nasopharyngitis [Unknown]
